FAERS Safety Report 16529890 (Version 1)
Quarter: 2019Q3

REPORT INFORMATION
  Report Type: Spontaneous
  Country: ES (occurrence: ES)
  Receive Date: 20190704
  Receipt Date: 20190704
  Transmission Date: 20191004
  Serious: Yes (Hospitalization, Other)
  Sender: FDA-Public Use
  Company Number: ES-AUROBINDO-AUR-APL-2019-037138

PATIENT

DRUGS (3)
  1. TEICOPLANIN [Suspect]
     Active Substance: TEICOPLANIN
     Indication: ACUTE RESPIRATORY FAILURE
     Dosage: 200 MILLIGRAM, DAILY
     Route: 042
     Dates: start: 20190316, end: 20190319
  2. AUGMENTINE [Suspect]
     Active Substance: AMOXICILLIN\CLAVULANATE POTASSIUM
     Indication: ACUTE RESPIRATORY FAILURE
     Dosage: 6 GRAM, DAILY
     Route: 042
     Dates: start: 20190307, end: 20190311
  3. PIPERACILLIN AND TAZOBACTAM [Suspect]
     Active Substance: PIPERACILLIN SODIUM\TAZOBACTAM SODIUM
     Indication: ACUTE RESPIRATORY FAILURE
     Dosage: 12 GRAM, DAILY
     Route: 042
     Dates: start: 20190311, end: 20190316

REACTIONS (1)
  - Clostridium difficile colitis [Recovered/Resolved]

NARRATIVE: CASE EVENT DATE: 20190318
